FAERS Safety Report 14410316 (Version 8)
Quarter: 2019Q3

REPORT INFORMATION
  Report Type: Report from Study
  Country: CA (occurrence: CA)
  Receive Date: 20180119
  Receipt Date: 20190730
  Transmission Date: 20191004
  Serious: Yes (Hospitalization, Other)
  Sender: FDA-Public Use
  Company Number: CA-BRISTOL-MYERS SQUIBB COMPANY-BMS-2017-118209

PATIENT
  Age: 72 Year
  Sex: Female

DRUGS (1)
  1. ABATACEPT [Suspect]
     Active Substance: ABATACEPT
     Indication: RHEUMATOID ARTHRITIS
     Dosage: 750 MG, Q4WK
     Route: 042
     Dates: start: 20110324

REACTIONS (9)
  - Cystitis [Recovered/Resolved]
  - Nasal disorder [Recovered/Resolved]
  - Upper limb fracture [Unknown]
  - Urinary tract infection [Recovering/Resolving]
  - Basal cell carcinoma [Unknown]
  - Fall [Unknown]
  - Cyst [Unknown]
  - Bowen^s disease [Unknown]
  - Circumstance or information capable of leading to medication error [Unknown]

NARRATIVE: CASE EVENT DATE: 20171220
